FAERS Safety Report 8826168 (Version 3)
Quarter: 2013Q1

REPORT INFORMATION
  Report Type: Spontaneous
  Country: US (occurrence: US)
  Receive Date: 20121005
  Receipt Date: 20130131
  Transmission Date: 20140127
  Serious: Yes (Death, Other)
  Sender: FDA-Public Use
  Company Number: US-CELGENEUS-163-21880-12100390

PATIENT
  Age: 81 None
  Sex: Male
  Weight: 57.2 kg

DRUGS (10)
  1. REVLIMID [Suspect]
     Indication: B-CELL LYMPHOMA
     Dosage: 5 MILLIGRAM
     Route: 048
     Dates: start: 201110
  2. REVLIMID [Suspect]
     Indication: LYMPHOMA
  3. KEFLEX [Concomitant]
     Indication: TUMOUR ULCERATION
     Dosage: 500 MILLIGRAM
     Route: 065
  4. ZOFRAN [Concomitant]
     Indication: NAUSEA
     Route: 060
  5. MEGACE [Concomitant]
     Indication: DECREASED APPETITE
     Dosage: INCREASED TO 5CC
     Route: 065
  6. MBX [Concomitant]
     Indication: MUCOSAL INFLAMMATION
     Route: 065
  7. NEULASTA [Concomitant]
     Indication: LEUKOPENIA
     Dosage: 4 MILLIGRAM
     Route: 058
     Dates: start: 20120531, end: 20120531
  8. DIFLUCAN [Concomitant]
     Indication: CANDIDA INFECTION
     Dosage: 200 MILLIGRAM
     Route: 048
     Dates: start: 201205
  9. ZINC OXIDE [Concomitant]
     Indication: PROCTALGIA
     Route: 061
  10. A+D [Concomitant]
     Indication: PROCTALGIA
     Route: 061

REACTIONS (2)
  - Respiratory failure [Fatal]
  - Bone marrow failure [Unknown]
